FAERS Safety Report 18148852 (Version 3)
Quarter: 2020Q3

REPORT INFORMATION
  Report Type: Spontaneous
  Country: CA (occurrence: CA)
  Receive Date: 20200814
  Receipt Date: 20200918
  Transmission Date: 20201103
  Serious: Yes (Death)
  Sender: FDA-Public Use
  Company Number: CA-REGENERON PHARMACEUTICALS, INC.-2020-69678

PATIENT

DRUGS (3)
  1. EYLEA [Suspect]
     Active Substance: AFLIBERCEPT
     Dosage: UNK
     Route: 031
     Dates: start: 20170207, end: 20170207
  2. EYLEA [Suspect]
     Active Substance: AFLIBERCEPT
     Dosage: UNK
     Route: 031
     Dates: start: 20170110, end: 20170110
  3. EYLEA [Suspect]
     Active Substance: AFLIBERCEPT
     Indication: PRODUCT USED FOR UNKNOWN INDICATION
     Dosage: UNK; TOTAL EYLEA DOSE PRIOR TO THE EVENT WAS 3. DATE OF LAST DOSE OF EYLEA PRIOR THE EVENET WERE 07?
     Route: 031
     Dates: start: 20161208, end: 20161208

REACTIONS (1)
  - Death [Fatal]

NARRATIVE: CASE EVENT DATE: 20200308
